FAERS Safety Report 8463523-4 (Version None)
Quarter: 2012Q2

REPORT INFORMATION
  Report Type: 
  Country: None (occurrence: None)
  Receive Date: 20120625
  Receipt Date: 20120618
  Transmission Date: 20120825
  Serious: Yes (Hospitalization, Other)
  Sender: FDA-Public Use
  Company Number: US-PFIZER INC-2012140638

PATIENT
  Sex: Female
  Weight: 108.84 kg

DRUGS (5)
  1. ZITHROMAX [Suspect]
     Indication: SINUS DISORDER
     Dosage: 250 MG, 2X/DAY
     Route: 048
     Dates: start: 20120501, end: 20120501
  2. ZITHROMAX [Suspect]
     Dosage: 250 MG, 1X/DAY
     Route: 048
     Dates: start: 20120501, end: 20120501
  3. LISINOPRIL [Concomitant]
     Indication: DIABETES MELLITUS
     Dosage: 10 MG, 1X/DAY
  4. ACTOS [Concomitant]
     Indication: DIABETES MELLITUS
     Dosage: 30 MG, 1X/DAY
  5. HYDROCHLOROTHIAZIDE [Concomitant]
     Indication: DIURETIC THERAPY
     Dosage: 12.5 MG, 1X/DAY

REACTIONS (8)
  - FEELING ABNORMAL [None]
  - OXYGEN SATURATION DECREASED [None]
  - BLOOD CREATININE INCREASED [None]
  - RENAL DISORDER [None]
  - CARDIAC DISORDER [None]
  - MALAISE [None]
  - PALPITATIONS [None]
  - BLOOD POTASSIUM INCREASED [None]
